FAERS Safety Report 6446393-5 (Version None)
Quarter: 2009Q4

REPORT INFORMATION
  Report Type: 
  Country: None (occurrence: None)
  Receive Date: 20091119
  Receipt Date: 20091110
  Transmission Date: 20100525
  Serious: Yes (Other)
  Sender: FDA-Public Use
  Company Number: CA-JNJFOC-20091103540

PATIENT
  Sex: Female
  Weight: 76 kg

DRUGS (2)
  1. REMICADE [Suspect]
     Dosage: 14TH DOSE
     Route: 042
     Dates: start: 20071018, end: 20090917
  2. REMICADE [Suspect]
     Indication: RHEUMATOID ARTHRITIS
     Route: 042
     Dates: start: 20071018, end: 20090917

REACTIONS (6)
  - BALANCE DISORDER [None]
  - FALL [None]
  - HYPOAESTHESIA [None]
  - NAUSEA [None]
  - NYSTAGMUS [None]
  - VOMITING [None]
